FAERS Safety Report 12067843 (Version 1)
Quarter: 2016Q1

REPORT INFORMATION
  Report Type: Spontaneous
  Country: None (occurrence: US)
  Receive Date: 20160210
  Receipt Date: 20160210
  Transmission Date: 20160526
  Serious: No
  Sender: FDA-Public Use
  Company Number: US-ALLERGAN-1523672US

PATIENT
  Age: 56 Year
  Sex: Male
  Weight: 92.97 kg

DRUGS (1)
  1. BOTOX [Suspect]
     Active Substance: ONABOTULINUMTOXINA
     Indication: TORTICOLLIS
     Dosage: 5 UNITS, SINGLE
     Route: 030
     Dates: start: 201508, end: 201508

REACTIONS (4)
  - Tooth extraction [Recovered/Resolved]
  - Musculoskeletal pain [Recovered/Resolved]
  - Dysphagia [Recovered/Resolved]
  - Neck pain [Recovered/Resolved]

NARRATIVE: CASE EVENT DATE: 201509
